FAERS Safety Report 20832891 (Version 2)
Quarter: 2022Q2

REPORT INFORMATION
  Report Type: Report from Study
  Country: US (occurrence: US)
  Receive Date: 20220516
  Receipt Date: 20220613
  Transmission Date: 20220721
  Serious: No
  Sender: FDA-Public Use
  Company Number: US-GLAXOSMITHKLINE-US2022AMR074253

PATIENT

DRUGS (1)
  1. BELANTAMAB MAFODOTIN [Suspect]
     Active Substance: BELANTAMAB MAFODOTIN
     Indication: Product used for unknown indication
     Dosage: UNK

REACTIONS (6)
  - Visual acuity reduced [Recovered/Resolved]
  - Night blindness [Recovered/Resolved]
  - Diplopia [Recovered/Resolved]
  - Dry eye [Recovered/Resolved]
  - Sensation of foreign body [Recovered/Resolved]
  - Keratopathy [Unknown]

NARRATIVE: CASE EVENT DATE: 20210917
